FAERS Safety Report 4825131-3 (Version None)
Quarter: 2005Q4

REPORT INFORMATION
  Report Type: 
  Country: None (occurrence: None)
  Receive Date: 20051109
  Receipt Date: 20051109
  Transmission Date: 20060501
  Serious: Yes (Life-Threatening, Hospitalization)
  Sender: FDA-Public Use
  Company Number: None

PATIENT
  Age: 83 Year
  Sex: Male
  Weight: 72 kg

DRUGS (1)
  1. FERROUS GLUCONATE [Suspect]
     Indication: ANAEMIA
     Dosage: 125 MG IVP X 1
     Route: 042

REACTIONS (1)
  - CARDIAC ARREST [None]
